FAERS Safety Report 5690040-7 (Version None)
Quarter: 2008Q2

REPORT INFORMATION
  Report Type: 
  Country: None (occurrence: None)
  Receive Date: 20080401
  Receipt Date: 20080219
  Transmission Date: 20081010
  Serious: No
  Sender: FDA-Public Use
  Company Number: US-BAYER-200815409NA

PATIENT
  Age: 57 Year
  Sex: Female
  Weight: 59 kg

DRUGS (8)
  1. MAGNEVIST [Suspect]
     Indication: NUCLEAR MAGNETIC RESONANCE IMAGING
     Route: 042
     Dates: start: 20080219, end: 20080219
  2. ADVIL [Concomitant]
  3. VICODIN [Concomitant]
  4. BIOTIN [Concomitant]
  5. OMEGA 3 [Concomitant]
  6. VITAMIN B-12 [Concomitant]
  7. LUNESTRA [Concomitant]
  8. GLUCOSAMINE [Concomitant]

REACTIONS (4)
  - EYE SWELLING [None]
  - NAUSEA [None]
  - THROAT IRRITATION [None]
  - VOMITING [None]
